FAERS Safety Report 10051312 (Version 2)
Quarter: 2014Q2

REPORT INFORMATION
  Report Type: Spontaneous
  Country: US (occurrence: US)
  Receive Date: 20140401
  Receipt Date: 20140421
  Transmission Date: 20141212
  Serious: No
  Sender: FDA-Public Use
  Company Number: US-PFIZER INC-2014087717

PATIENT
  Age: 6 Year
  Sex: Female

DRUGS (1)
  1. GENOTROPIN [Suspect]
     Indication: TURNER^S SYNDROME
     Dosage: 0.8 MG, DAILY
     Route: 058
     Dates: start: 20140303

REACTIONS (2)
  - Headache [Recovering/Resolving]
  - Abdominal pain upper [Recovering/Resolving]
